FAERS Safety Report 5440474-0 (Version None)
Quarter: 2007Q3

REPORT INFORMATION
  Report Type: 
  Country: None (occurrence: None)
  Receive Date: 20070831
  Receipt Date: 20070821
  Transmission Date: 20080115
  Serious: Yes (Other)
  Sender: FDA-Public Use
  Company Number: FR-ROCHE-512677

PATIENT
  Age: 42 Year
  Sex: Male

DRUGS (4)
  1. PEG-INTERFERON ALFA NOS [Suspect]
     Indication: HEPATITIS C
     Route: 065
  2. PEG-INTERFERON ALFA NOS [Suspect]
     Route: 065
  3. RIBAVIRIN [Suspect]
     Indication: HEPATITIS C
     Route: 065
  4. RIBAVIRIN [Suspect]
     Route: 065

REACTIONS (3)
  - DRUG DEPENDENCE [None]
  - EPISCLERITIS [None]
  - VOGT-KOYANAGI-HARADA SYNDROME [None]
